FAERS Safety Report 21396086 (Version 1)
Quarter: 2022Q3

REPORT INFORMATION
  Report Type: Spontaneous
  Country: JP (occurrence: JP)
  Receive Date: 20220930
  Receipt Date: 20220930
  Transmission Date: 20221026
  Serious: Yes (Other)
  Sender: FDA-Public Use
  Company Number: JP-SUN PHARMACEUTICAL INDUSTRIES LTD-2022R1-356624

PATIENT
  Weight: 2.534 kg

DRUGS (2)
  1. METHIMAZOLE [Suspect]
     Active Substance: METHIMAZOLE
     Indication: Blood thyroid stimulating hormone decreased
     Dosage: 10 MILLIGRAM, DAILY
     Route: 064
  2. POTASSIUM IODIDE [Suspect]
     Active Substance: POTASSIUM IODIDE
     Indication: Blood thyroid stimulating hormone decreased
     Dosage: 0.71 MILLIGRAM/KILOGRAM, DAILY
     Route: 064

REACTIONS (2)
  - Central hypothyroidism [Recovered/Resolved]
  - Foetal exposure during pregnancy [Unknown]
